FAERS Safety Report 4806762-3 (Version None)
Quarter: 2005Q4

REPORT INFORMATION
  Report Type: 
  Country: None (occurrence: None)
  Receive Date: 20051019
  Receipt Date: 20051005
  Transmission Date: 20060501
  Serious: Yes (Other)
  Sender: FDA-Public Use
  Company Number: EWC051046365

PATIENT
  Sex: Male

DRUGS (2)
  1. GEMCITABINE HYDROCHLORIDE-IV (GEMCITABINE) [Suspect]
     Indication: NON-SMALL CELL LUNG CANCER
     Dates: start: 20050901
  2. CISPLATIN [Concomitant]

REACTIONS (3)
  - ANOMALOUS PULMONARY VENOUS CONNECTION [None]
  - DRUG HYPERSENSITIVITY [None]
  - LUNG DISORDER [None]
